FAERS Safety Report 19064290 (Version 1)
Quarter: 2021Q1

REPORT INFORMATION
  Report Type: Report from Study
  Country: IL (occurrence: IL)
  Receive Date: 20210326
  Receipt Date: 20210326
  Transmission Date: 20210420
  Serious: Yes (Other)
  Sender: FDA-Public Use
  Company Number: NVSC2021IL002933

PATIENT
  Age: 46 Year
  Sex: Female

DRUGS (2)
  1. MAYZENT [Suspect]
     Active Substance: SIPONIMOD
     Indication: RELAPSING-REMITTING MULTIPLE SCLEROSIS
     Dosage: 0.25 MG, QD
     Route: 048
     Dates: start: 20210103
  2. MAYZENT [Suspect]
     Active Substance: SIPONIMOD
     Dosage: 1.2 MG, QD
     Route: 048

REACTIONS (11)
  - Pituitary tumour benign [Not Recovered/Not Resolved]
  - Chills [Recovering/Resolving]
  - Asthenia [Recovered/Resolved]
  - Conjunctivitis [Unknown]
  - Abdominal pain lower [Recovered/Resolved]
  - Eye pain [Not Recovered/Not Resolved]
  - Head discomfort [Recovered/Resolved]
  - Headache [Recovering/Resolving]
  - Foreign body sensation in eyes [Not Recovered/Not Resolved]
  - Feeling cold [Not Recovered/Not Resolved]
  - Product dispensing error [Unknown]

NARRATIVE: CASE EVENT DATE: 20210109
